FAERS Safety Report 6527997-8 (Version None)
Quarter: 2010Q1

REPORT INFORMATION
  Report Type: 
  Country: None (occurrence: None)
  Receive Date: 20100105
  Receipt Date: 20100105
  Transmission Date: 20100710
  Serious: Yes (Other)
  Sender: FDA-Public Use
  Company Number: None

PATIENT
  Age: 27 Year
  Sex: Female
  Weight: 53.5244 kg

DRUGS (1)
  1. SPECTRACEF [Suspect]
     Indication: EAR INFECTION
     Dosage: 200MG TID PO
     Route: 048
     Dates: start: 20091226, end: 20091231

REACTIONS (1)
  - NAUSEA [None]
